FAERS Safety Report 7201505-0 (Version None)
Quarter: 2010Q4

REPORT INFORMATION
  Report Type: 
  Country: None (occurrence: None)
  Receive Date: 20101216
  Receipt Date: 20101210
  Transmission Date: 20110411
  Serious: Yes (Death, Hospitalization)
  Sender: FDA-Public Use
  Company Number: 110219

PATIENT
  Age: 8 Year
  Sex: Male

DRUGS (2)
  1. CISPLATIN [Suspect]
     Indication: BONE SARCOMA
     Dosage: 720 MG/M 2
  2. METHOTREXATE [Suspect]
     Indication: BONE SARCOMA
     Dosage: 144 G/M 2

REACTIONS (2)
  - ACUTE MYELOID LEUKAEMIA [None]
  - LEG AMPUTATION [None]
